FAERS Safety Report 8531530-9 (Version None)
Quarter: 2012Q2

REPORT INFORMATION
  Report Type: 
  Country: None (occurrence: None)
  Receive Date: 20120412
  Receipt Date: 20110720
  Transmission Date: 20120825
  Serious: Yes (Death)
  Sender: FDA-Public Use
  Company Number: 119996

PATIENT
  Sex: Female

DRUGS (2)
  1. BLEOMYCIN SULFATE [Suspect]
     Indication: HODGKIN'S DISEASE
  2. ADRIAMYCIN PFS [Suspect]
     Indication: HODGKIN'S DISEASE

REACTIONS (1)
  - DEATH [None]
